FAERS Safety Report 22398741 (Version 1)
Quarter: 2023Q2

REPORT INFORMATION
  Report Type: Spontaneous
  Country: GB (occurrence: GB)
  Receive Date: 20230602
  Receipt Date: 20230602
  Transmission Date: 20230722
  Serious: Yes (Other)
  Sender: FDA-Public Use
  Company Number: GB-SA-SAC20230601001309

PATIENT
  Age: 68 Year
  Sex: Female

DRUGS (1)
  1. KEVZARA [Suspect]
     Active Substance: SARILUMAB
     Dosage: UNK
     Route: 058
     Dates: start: 201811

REACTIONS (5)
  - Facial bones fracture [Unknown]
  - Fall [Unknown]
  - Sinusitis [Unknown]
  - Labyrinthitis [Unknown]
  - Lower respiratory tract infection [Unknown]
